FAERS Safety Report 5596843-1 (Version None)
Quarter: 2008Q1

REPORT INFORMATION
  Report Type: 
  Country: None (occurrence: None)
  Receive Date: 20080119
  Receipt Date: 20080109
  Transmission Date: 20080703
  Serious: Yes (Death, Disabling, Other)
  Sender: FDA-Public Use
  Company Number: GB-PFIZER INC-2008004004

PATIENT
  Sex: Male

DRUGS (1)
  1. LIPITOR [Suspect]
     Route: 048

REACTIONS (4)
  - ANGIOEDEMA [None]
  - DEATH [None]
  - FATIGUE [None]
  - GAIT DISTURBANCE [None]
